FAERS Safety Report 9880611 (Version 1)
Quarter: 2014Q1

REPORT INFORMATION
  Report Type: Report from Study
  Country: CA (occurrence: CA)
  Receive Date: 20140207
  Receipt Date: 20140207
  Transmission Date: 20141002
  Serious: Yes (Hospitalization)
  Sender: FDA-Public Use
  Company Number: CA-JNJFOC-20140200855

PATIENT
  Age: 57 Year
  Sex: Male
  Weight: 109.5 kg

DRUGS (11)
  1. REMICADE [Suspect]
     Indication: CROHN^S DISEASE
     Route: 042
  2. REMICADE [Suspect]
     Indication: CROHN^S DISEASE
     Dosage: 63RD INFUSION.
     Route: 042
     Dates: start: 20140131
  3. ASACOL [Concomitant]
     Route: 065
  4. ADALAT [Concomitant]
     Route: 065
  5. ATENOLOL [Concomitant]
     Route: 065
  6. FENOFIBRATE [Concomitant]
     Route: 065
  7. IMURAN [Concomitant]
     Route: 065
  8. METFORMIN [Concomitant]
     Route: 065
  9. RABEPRAZOLE [Concomitant]
     Route: 065
  10. CRESTOR [Concomitant]
     Route: 065
  11. DIPHENHYDRAMINE HYDROCHLORIDE [Concomitant]
     Indication: PREMEDICATION
     Route: 042

REACTIONS (1)
  - Nephrolithiasis [Unknown]
